FAERS Safety Report 6156227-4 (Version None)
Quarter: 2009Q2

REPORT INFORMATION
  Report Type: 
  Country: None (occurrence: None)
  Receive Date: 20090415
  Receipt Date: 20090406
  Transmission Date: 20091009
  Serious: Yes (Hospitalization)
  Sender: FDA-Public Use
  Company Number: US-GENENTECH-279564

PATIENT
  Sex: Male
  Weight: 58.957 kg

DRUGS (3)
  1. NUTROPIN AQ [Suspect]
     Indication: GROWTH RETARDATION
     Dosage: 3.6 UNK, QD
     Route: 058
     Dates: start: 20050111, end: 20090130
  2. NUTROPIN AQ [Suspect]
     Dosage: 3.3 ML, QD
     Route: 058
  3. NUTROPIN AQ [Suspect]
     Dosage: 3.6 ML, QD
     Route: 058
     Dates: start: 20090119

REACTIONS (1)
  - GUILLAIN-BARRE SYNDROME [None]
